FAERS Safety Report 5163520-0 (Version None)
Quarter: 2006Q4

REPORT INFORMATION
  Report Type: 
  Country: None (occurrence: None)
  Receive Date: 20061124
  Receipt Date: 20061113
  Transmission Date: 20070319
  Serious: Yes (Other)
  Sender: FDA-Public Use
  Company Number: 2006140135

PATIENT
  Sex: Male

DRUGS (2)
  1. QUINAPRIL HCL [Suspect]
     Dosage: (20 MG)
  2. TOPROL-XL [Suspect]
     Dosage: (50 MG)

REACTIONS (2)
  - ILL-DEFINED DISORDER [None]
  - MYOCARDIAL INFARCTION [None]
